FAERS Safety Report 7468323-X (Version None)
Quarter: 2011Q2

REPORT INFORMATION
  Report Type: 
  Country: None (occurrence: None)
  Receive Date: 20110509
  Receipt Date: 20110428
  Transmission Date: 20111010
  Serious: Yes (Hospitalization)
  Sender: FDA-Public Use
  Company Number: FR-GENENTECH-317034

PATIENT
  Sex: Male

DRUGS (15)
  1. RITUXAN [Suspect]
     Indication: CHRONIC LYMPHOCYTIC LEUKAEMIA
     Dosage: 835 MG, QD
     Route: 041
     Dates: start: 20091207
  2. FLUDARA [Suspect]
     Dosage: 70 MG, QAM
     Route: 002
     Dates: start: 20100126, end: 20100128
  3. CYCLOPHOSPHAMIDE [Suspect]
     Indication: B-CELL SMALL LYMPHOCYTIC LYMPHOMA
     Dosage: 400 MG, QAM
     Route: 002
     Dates: start: 20091208, end: 20091209
  4. ZELITREX [Concomitant]
     Indication: INFECTION
  5. BISOPROLOL FUMARATE [Concomitant]
     Indication: PRODUCT USED FOR UNKNOWN INDICATION
  6. PREVISCAN (FRANCE) [Concomitant]
     Indication: PRODUCT USED FOR UNKNOWN INDICATION
  7. LEDERFOLINE [Concomitant]
     Indication: PRODUCT USED FOR UNKNOWN INDICATION
  8. RITUXAN [Suspect]
     Dosage: 820 MG, QAM
     Route: 041
     Dates: start: 20100126, end: 20100126
  9. FLUDARA [Suspect]
     Indication: CHRONIC LYMPHOCYTIC LEUKAEMIA
     Dosage: 70 MG, QAM
     Route: 002
     Dates: start: 20091208, end: 20091210
  10. CYCLOPHOSPHAMIDE [Suspect]
     Dosage: 400 MG, QAM
     Route: 002
     Dates: start: 20100126, end: 20100127
  11. METFORMIN [Concomitant]
     Indication: PRODUCT USED FOR UNKNOWN INDICATION
  12. XATRAL [Concomitant]
     Indication: PRODUCT USED FOR UNKNOWN INDICATION
  13. BACTRIM [Concomitant]
     Indication: PRODUCT USED FOR UNKNOWN INDICATION
  14. CYCLOPHOSPHAMIDE [Suspect]
     Dosage: 450 MG, QAM
     Route: 002
     Dates: start: 20091210
  15. CYCLOPHOSPHAMIDE [Suspect]
     Dosage: 450 MG, QAM
     Route: 002
     Dates: start: 20100128

REACTIONS (4)
  - LUNG DISORDER [None]
  - BRONCHOPULMONARY ASPERGILLOSIS [None]
  - PYREXIA [None]
  - ESCHERICHIA BACTERAEMIA [None]
